FAERS Safety Report 20747008 (Version 1)
Quarter: 2022Q2

REPORT INFORMATION
  Report Type: Spontaneous
  Country: US (occurrence: US)
  Receive Date: 20220425
  Receipt Date: 20220425
  Transmission Date: 20220721
  Serious: No
  Sender: FDA-Public Use
  Company Number: US-PFIZER INC-2021898120

PATIENT
  Age: 51 Year
  Sex: Female

DRUGS (7)
  1. METHYLPREDNISOLONE [Suspect]
     Active Substance: METHYLPREDNISOLONE
  2. PREDNISONE [Suspect]
     Active Substance: PREDNISONE
  3. LORATADINE [Suspect]
     Active Substance: LORATADINE
     Route: 048
  4. HYDROCORTISONE [Suspect]
     Active Substance: HYDROCORTISONE
  5. ZINC [Concomitant]
     Active Substance: ZINC
  6. VITAMIN D NOS [Concomitant]
     Active Substance: VITAMIN D NOS
  7. DIETARY SUPPLEMENT\UBIDECARENONE [Concomitant]
     Active Substance: DIETARY SUPPLEMENT\UBIDECARENONE

REACTIONS (1)
  - Drug ineffective [Unknown]
